FAERS Safety Report 7820126-X (Version None)
Quarter: 2011Q4

REPORT INFORMATION
  Report Type: 
  Country: None (occurrence: None)
  Receive Date: 20111018
  Receipt Date: 20111006
  Transmission Date: 20120403
  Serious: Yes (Hospitalization)
  Sender: FDA-Public Use
  Company Number: PHHY2011US41503

PATIENT
  Sex: Female

DRUGS (3)
  1. GLEEVEC [Suspect]
     Indication: ACUTE LYMPHOCYTIC LEUKAEMIA
     Dosage: 400 MG, DAILY
     Route: 048
  2. GLEEVEC [Suspect]
     Dosage: 300 MG, BID
     Route: 048
     Dates: start: 20110622
  3. GLEEVEC [Suspect]
     Indication: CHRONIC MYELOID LEUKAEMIA
     Dosage: 300 MG, BID
     Route: 048
     Dates: start: 20110412

REACTIONS (5)
  - DIVERTICULITIS [None]
  - FAECALOMA [None]
  - FEELING ABNORMAL [None]
  - MUSCLE SPASMS [None]
  - DIARRHOEA [None]
